FAERS Safety Report 12596943 (Version 1)
Quarter: 2016Q3

REPORT INFORMATION
  Report Type: Spontaneous
  Country: US (occurrence: None)
  Receive Date: 20160726
  Receipt Date: 20160726
  Transmission Date: 20161109
  Serious: No
  Sender: FDA-Public Use
  Company Number: None

PATIENT
  Age: 30 Year
  Sex: Male
  Weight: 104.33 kg

DRUGS (1)
  1. SUBOXONE [Suspect]
     Active Substance: BUPRENORPHINE HYDROCHLORIDE\NALOXONE HYDROCHLORIDE
     Indication: PAIN
     Dosage: 1 FILM TWICE A DAY TAKEN UNDER THE TONGUE
     Route: 060

REACTIONS (4)
  - Miosis [None]
  - Eyelid disorder [None]
  - Periorbital disorder [None]
  - Yawning [None]

NARRATIVE: CASE EVENT DATE: 20160725
